FAERS Safety Report 10077566 (Version 1)
Quarter: 2014Q2

REPORT INFORMATION
  Report Type: Spontaneous
  Country: US (occurrence: US)
  Receive Date: 20140414
  Receipt Date: 20140414
  Transmission Date: 20141212
  Serious: No
  Sender: FDA-Public Use
  Company Number: US-BANPHARM-20131828

PATIENT
  Age: 96 Year
  Sex: Female
  Weight: 60.32 kg

DRUGS (5)
  1. NAPROXEN SODIUM 220 MG [Suspect]
     Indication: ARTHRALGIA
     Dosage: 220 MG,
     Route: 048
     Dates: start: 20131009, end: 20131009
  2. VITAMIN B COMPLEX [Concomitant]
  3. TOPROL [Concomitant]
     Dates: start: 2003
  4. DIGOXIN [Concomitant]
     Dates: start: 2003
  5. LASIX [Concomitant]
     Dates: start: 2003

REACTIONS (5)
  - Dyspepsia [Not Recovered/Not Resolved]
  - Dyspepsia [Not Recovered/Not Resolved]
  - Nausea [Recovered/Resolved]
  - Decreased appetite [Not Recovered/Not Resolved]
  - Inappropriate schedule of drug administration [Unknown]
